FAERS Safety Report 20929478 (Version 3)
Quarter: 2024Q2

REPORT INFORMATION
  Report Type: Spontaneous
  Country: NZ (occurrence: NZ)
  Receive Date: 20220608
  Receipt Date: 20240417
  Transmission Date: 20240716
  Serious: Yes (Other)
  Sender: FDA-Public Use
  Company Number: NZ-SUN PHARMACEUTICAL INDUSTRIES LTD-2022R1-339650

PATIENT
  Sex: Male

DRUGS (1)
  1. INDOMETHACIN [Suspect]
     Active Substance: INDOMETHACIN
     Indication: Patent ductus arteriosus
     Dosage: 0.1 MILLIGRAM/KILOGRAM, DAILY
     Route: 042

REACTIONS (2)
  - Acute kidney injury [Unknown]
  - Therapy non-responder [Unknown]
